FAERS Safety Report 5612922-4 (Version None)
Quarter: 2008Q1

REPORT INFORMATION
  Report Type: 
  Country: None (occurrence: None)
  Receive Date: 20080204
  Receipt Date: 20080122
  Transmission Date: 20080703
  Serious: No
  Sender: FDA-Public Use
  Company Number: US-BOEHRINGER INGELHEIM GMBH, GERMANY-2008-BP-01025BP

PATIENT
  Age: 74 Year
  Sex: Male

DRUGS (3)
  1. ZANTAC 150 [Suspect]
     Indication: DYSPEPSIA
     Route: 048
     Dates: start: 20080101, end: 20080101
  2. ZANTAC 150 [Suspect]
     Indication: HIATUS HERNIA
  3. OMEPRAZOLE (PRILOSEC GENERIC) [Concomitant]
     Indication: DYSPEPSIA

REACTIONS (1)
  - ABDOMINAL PAIN UPPER [None]
